FAERS Safety Report 23616191 (Version 1)
Quarter: 2024Q1

REPORT INFORMATION
  Report Type: Spontaneous
  Country: US (occurrence: US)
  Receive Date: 20240311
  Receipt Date: 20240311
  Transmission Date: 20240410
  Serious: No
  Sender: FDA-Public Use
  Company Number: US-ELI_LILLY_AND_COMPANY-US202403001892

PATIENT
  Sex: Female

DRUGS (4)
  1. MOUNJARO [Suspect]
     Active Substance: TIRZEPATIDE
     Indication: Gestational diabetes
     Dosage: 5 MG, UNKNOWN
     Route: 065
     Dates: start: 202308
  2. MOUNJARO [Suspect]
     Active Substance: TIRZEPATIDE
     Indication: Gestational diabetes
     Dosage: 5 MG, UNKNOWN
     Route: 065
     Dates: start: 202308
  3. MOUNJARO [Suspect]
     Active Substance: TIRZEPATIDE
     Indication: Gestational diabetes
     Dosage: 5 MG, UNKNOWN
     Route: 065
     Dates: start: 202308
  4. MOUNJARO [Suspect]
     Active Substance: TIRZEPATIDE
     Indication: Gestational diabetes
     Dosage: 5 MG, UNKNOWN
     Route: 065
     Dates: start: 202308

REACTIONS (2)
  - Maternal exposure during pregnancy [Unknown]
  - Off label use [Unknown]

NARRATIVE: CASE EVENT DATE: 20230801
